FAERS Safety Report 4273007-5 (Version None)
Quarter: 2004Q1

REPORT INFORMATION
  Report Type: 
  Country: None (occurrence: None)
  Receive Date: 20040114
  Receipt Date: 20040105
  Transmission Date: 20041129
  Serious: Yes (Hospitalization)
  Sender: FDA-Public Use
  Company Number: FR-JNJFOC-20040100363

PATIENT
  Age: 54 Year
  Sex: Male

DRUGS (6)
  1. REMICADE [Suspect]
     Indication: RHEUMATOID ARTHRITIS
     Dosage: SEE IMAGE
     Route: 042
     Dates: start: 20011203, end: 20030407
  2. REMICADE [Suspect]
     Indication: RHEUMATOID ARTHRITIS
     Dosage: SEE IMAGE
     Route: 042
     Dates: start: 20030602, end: 20030602
  3. SPECIAFOLDINE  (FOLIC ACID)TABLETS [Concomitant]
  4. METHOTREXATE [Concomitant]
  5. CELEBREX [Concomitant]
  6. INEXIUM (ESOMEPRAZOLE) [Concomitant]

REACTIONS (3)
  - ARTHRALGIA [None]
  - HAEMOGLOBIN DECREASED [None]
  - SYSTEMIC LUPUS ERYTHEMATOSUS [None]
